FAERS Safety Report 9165151 (Version 1)
Quarter: 2013Q1

REPORT INFORMATION
  Report Type: Spontaneous
  Country: NZ (occurrence: NZ)
  Receive Date: 20130315
  Receipt Date: 20130315
  Transmission Date: 20140127
  Serious: Yes (Other)
  Sender: FDA-Public Use
  Company Number: NZ-PFIZER INC-2013083711

PATIENT
  Sex: Female

DRUGS (2)
  1. EFEXOR XR [Suspect]
     Dosage: UNK
  2. LITHIUM [Concomitant]
     Dosage: UNK

REACTIONS (2)
  - Mania [Unknown]
  - Bipolar disorder [Unknown]
